FAERS Safety Report 5018890-0 (Version None)
Quarter: 2006Q2

REPORT INFORMATION
  Report Type: 
  Country: None (occurrence: None)
  Receive Date: 20060531
  Receipt Date: 20060518
  Transmission Date: 20061013
  Serious: Yes (Other)
  Sender: FDA-Public Use
  Company Number: 2006054415

PATIENT
  Sex: Male

DRUGS (1)
  1. GEODON [Suspect]
     Indication: BIPOLAR DISORDER
     Dosage: 2 IN 1 D

REACTIONS (4)
  - ANAPHYLACTIC SHOCK [None]
  - FOOD ALLERGY [None]
  - HYPERSENSITIVITY [None]
  - RESPIRATORY DISTRESS [None]
